FAERS Safety Report 6386661-9 (Version None)
Quarter: 2009Q4

REPORT INFORMATION
  Report Type: 
  Country: None (occurrence: None)
  Receive Date: 20091002
  Receipt Date: 20090924
  Transmission Date: 20100525
  Serious: Yes (Hospitalization, Other)
  Sender: FDA-Public Use
  Company Number: BR-ROCHE-658816

PATIENT
  Sex: Female
  Weight: 83 kg

DRUGS (2)
  1. XELODA [Suspect]
     Indication: BREAST CANCER
     Dosage: DOSE REPORTED AS 500 MG
     Route: 048
     Dates: start: 20090601, end: 20090905
  2. HYGROTON [Concomitant]
     Indication: HYPERTENSION
     Route: 048

REACTIONS (3)
  - DRUG INEFFECTIVE [None]
  - LYMPHADENOPATHY [None]
  - PULMONARY OEDEMA [None]
